FAERS Safety Report 5289296-4 (Version None)
Quarter: 2007Q2

REPORT INFORMATION
  Report Type: 
  Country: None (occurrence: None)
  Receive Date: 20070404
  Receipt Date: 20070404
  Transmission Date: 20071010
  Serious: No
  Sender: FDA-Public Use
  Company Number: None

PATIENT
  Age: 35 Year
  Sex: Female
  Weight: 56.6996 kg

DRUGS (2)
  1. PAXIL [Suspect]
     Indication: ANXIETY
     Dosage: 20MG 1 X DAILY
     Dates: start: 20000101, end: 20020615
  2. PAXIL [Suspect]
     Indication: OBSESSIVE-COMPULSIVE DISORDER

REACTIONS (14)
  - ABDOMINAL PAIN UPPER [None]
  - CHILLS [None]
  - DEHYDRATION [None]
  - DIARRHOEA [None]
  - ERUCTATION [None]
  - ERYTHEMA [None]
  - FATIGUE [None]
  - FEELING HOT [None]
  - HEADACHE [None]
  - IRRITABILITY [None]
  - PERIPHERAL COLDNESS [None]
  - SKIN TURGOR DECREASED [None]
  - TEMPERATURE INTOLERANCE [None]
  - WOLFF-PARKINSON-WHITE SYNDROME [None]
